FAERS Safety Report 20986426 (Version 1)
Quarter: 2022Q2

REPORT INFORMATION
  Report Type: Spontaneous
  Country: US (occurrence: None)
  Receive Date: 20220617
  Receipt Date: 20220617
  Transmission Date: 20220720
  Serious: Yes (Other)
  Sender: FDA-Public Use
  Company Number: None

PATIENT
  Age: 49 Year
  Sex: Female
  Weight: 67.5 kg

DRUGS (5)
  1. DEXTROAMPHET SACCHARAT, AMPHET ASPARTATE, DEXTROAMPHET SULFATE AND AMP [Suspect]
     Active Substance: AMPHETAMINE ASPARTATE\AMPHETAMINE SULFATE\DEXTROAMPHETAMINE SACCHARATE\DEXTROAMPHETAMINE SULFATE
     Indication: Attention deficit hyperactivity disorder
     Dosage: 60 CAPSULE(S)  TWICE A DAY ORAL?
     Route: 048
     Dates: start: 20220617, end: 20220617
  2. CLONOPIN [Concomitant]
     Active Substance: CLONAZEPAM
  3. multivitamin [Concomitant]
  4. Omega 3 [Concomitant]
  5. VITAMIN C [Concomitant]
     Active Substance: ASCORBIC ACID

REACTIONS (5)
  - Dizziness [None]
  - Dizziness [None]
  - Vomiting [None]
  - Loss of personal independence in daily activities [None]
  - Disturbance in attention [None]

NARRATIVE: CASE EVENT DATE: 20220617
